FAERS Safety Report 23261511 (Version 1)
Quarter: 2023Q4

REPORT INFORMATION
  Report Type: Spontaneous
  Country: ZA (occurrence: ZA)
  Receive Date: 20231205
  Receipt Date: 20231205
  Transmission Date: 20240109
  Serious: Yes (Hospitalization, Other)
  Sender: FDA-Public Use
  Company Number: ZA-LUPIN PHARMACEUTICALS INC.-2023-10887

PATIENT

DRUGS (10)
  1. LOSARTAN POTASSIUM [Suspect]
     Active Substance: LOSARTAN POTASSIUM
     Indication: Hypertension
     Dosage: 100 MG
     Route: 048
  2. BISOPROLOL FUMARATE [Suspect]
     Active Substance: BISOPROLOL FUMARATE
     Indication: Hypertension
     Dosage: 5 MG
     Route: 048
  3. DOXAZOSIN MESYLATE [Suspect]
     Active Substance: DOXAZOSIN MESYLATE
     Indication: Prostatic disorder
     Dosage: 4 MG
     Route: 048
  4. ATORVASTATIN [Suspect]
     Active Substance: ATORVASTATIN
     Indication: Blood cholesterol abnormal
     Dosage: 10 MG
     Route: 048
  5. HYDROCHLOROTHIAZIDE [Suspect]
     Active Substance: HYDROCHLOROTHIAZIDE
     Indication: Hypertension
     Dosage: 12.5 MG
     Route: 048
  6. METFORMIN HYDROCHLORIDE [Suspect]
     Active Substance: METFORMIN HYDROCHLORIDE
     Indication: Diabetes mellitus
     Dosage: 1000 MG
     Route: 048
  7. ASPIRIN [Suspect]
     Active Substance: ASPIRIN
     Indication: Anticoagulant therapy
     Dosage: 100 MG
     Route: 048
  8. PREGABALIN [Suspect]
     Active Substance: PREGABALIN
     Indication: Epilepsy
     Dosage: 75 MG
     Route: 048
  9. PIMECLONE HYDROCHLORIDE [Suspect]
     Active Substance: PIMECLONE HYDROCHLORIDE
     Indication: Hypertension
     Dosage: 25 MG
     Route: 048
  10. ACETAMINOPHEN\CODEINE PHOSPHATE\PROMETHAZINE HYDROCHLORIDE [Suspect]
     Active Substance: ACETAMINOPHEN\CODEINE PHOSPHATE\PROMETHAZINE HYDROCHLORIDE
     Indication: Pain
     Dosage: UNK
     Route: 048

REACTIONS (1)
  - Cerebrovascular accident [Unknown]
